FAERS Safety Report 5600969-3 (Version None)
Quarter: 2008Q1

REPORT INFORMATION
  Report Type: 
  Country: None (occurrence: None)
  Receive Date: 20080124
  Receipt Date: 20080114
  Transmission Date: 20080703
  Serious: Yes (Hospitalization, Other)
  Sender: FDA-Public Use
  Company Number: PHHY2008MX00752

PATIENT
  Age: 51 Year
  Sex: Female

DRUGS (3)
  1. ZOMETA [Suspect]
     Indication: OSTEOPOROSIS
     Dosage: 4 MG /5ML IV INFUSION PER YEAR
     Dates: start: 20071114
  2. ANTIBIOTICS [Concomitant]
  3. ANTACID TAB [Concomitant]

REACTIONS (4)
  - CONSTIPATION [None]
  - GASTROINTESTINAL INFLAMMATION [None]
  - MUSCULAR WEAKNESS [None]
  - MYALGIA [None]
